FAERS Safety Report 12485075 (Version 1)
Quarter: 2016Q2

REPORT INFORMATION
  Report Type: Spontaneous
  Country: US (occurrence: US)
  Receive Date: 20160621
  Receipt Date: 20160621
  Transmission Date: 20160815
  Serious: No
  Sender: FDA-Public Use
  Company Number: US-PFIZER INC-2016283645

PATIENT
  Age: 63 Year

DRUGS (5)
  1. NEURONTIN [Suspect]
     Active Substance: GABAPENTIN
  2. TRICOT [Suspect]
     Active Substance: SULFAMETHOXAZOLE\TRIMETHOPRIM
  3. HYDROCODONE [Suspect]
     Active Substance: HYDROCODONE
  4. FENOFIBRATE. [Suspect]
     Active Substance: FENOFIBRATE
  5. OXYCONTIN [Suspect]
     Active Substance: OXYCODONE HYDROCHLORIDE

REACTIONS (1)
  - Drug hypersensitivity [Unknown]
